FAERS Safety Report 6742834-4 (Version None)
Quarter: 2010Q2

REPORT INFORMATION
  Report Type: 
  Country: None (occurrence: None)
  Receive Date: 20100525
  Receipt Date: 20100513
  Transmission Date: 20101027
  Serious: Yes (Hospitalization)
  Sender: FDA-Public Use
  Company Number: 232567J09USA

PATIENT
  Age: 48 Year
  Sex: Female
  Weight: 91 kg

DRUGS (6)
  1. REBIF [Suspect]
     Indication: MULTIPLE SCLEROSIS
     Dosage: 44 MCG, 3 IN 1 WK, SUBCUTANEOUS; 22 MCG, 3 IN 1 WK, SUBCUTANEOUS; 44 MCG SUBCUTANEOUS
     Route: 058
     Dates: start: 20081008, end: 20081201
  2. REBIF [Suspect]
     Indication: MULTIPLE SCLEROSIS
     Dosage: 44 MCG, 3 IN 1 WK, SUBCUTANEOUS; 22 MCG, 3 IN 1 WK, SUBCUTANEOUS; 44 MCG SUBCUTANEOUS
     Route: 058
     Dates: start: 20081201
  3. VITAMIN D [Concomitant]
  4. FISH OIL (FISH OIL) [Concomitant]
  5. PREVACID [Concomitant]
  6. UNSPECIFIED ALLERGY MEDICATION (ALLERGY MEDICATION) [Concomitant]

REACTIONS (4)
  - BLOOD HUMAN CHORIONIC GONADOTROPIN INCREASED [None]
  - LIVER FUNCTION TEST ABNORMAL [None]
  - OVARIAN CYST [None]
  - VAGINAL HAEMORRHAGE [None]
